FAERS Safety Report 24216205 (Version 2)
Quarter: 2024Q3

REPORT INFORMATION
  Report Type: Report from Study
  Country: US (occurrence: None)
  Receive Date: 20240816
  Receipt Date: 20240911
  Transmission Date: 20241016
  Serious: Yes (Other)
  Sender: ASTRAZENECA
  Company Number: 2024A179815

PATIENT
  Sex: Female

DRUGS (1)
  1. TRUQAP [Suspect]
     Active Substance: CAPIVASERTIB
     Indication: Breast cancer female
     Route: 048
     Dates: start: 20240419

REACTIONS (5)
  - Seizure [Unknown]
  - Dehydration [Unknown]
  - Stress [Unknown]
  - Diarrhoea [Unknown]
  - Intentional dose omission [Unknown]
